FAERS Safety Report 9186180 (Version 1)
Quarter: 2013Q1

REPORT INFORMATION
  Report Type: Spontaneous
  Country: US (occurrence: US)
  Receive Date: 20130325
  Receipt Date: 20130325
  Transmission Date: 20140127
  Serious: No
  Sender: FDA-Public Use
  Company Number: US-009507513-1303USA009617

PATIENT
  Age: 78 Year
  Sex: Male

DRUGS (7)
  1. ZETIA [Suspect]
     Indication: HYPERTENSION
     Dosage: 10 MG, QD
     Route: 048
  2. METOPROLOL [Concomitant]
  3. SIMVASTATIN TABLETS, USP [Concomitant]
  4. WARFARIN SODIUM [Concomitant]
  5. KLOR-CON [Concomitant]
  6. DIGOXIN [Concomitant]
  7. FUROSEMIDE [Concomitant]

REACTIONS (2)
  - Fall [Recovering/Resolving]
  - Dysstasia [Recovering/Resolving]
